FAERS Safety Report 22111811 (Version 1)
Quarter: 2023Q1

REPORT INFORMATION
  Report Type: Spontaneous
  Country: GB (occurrence: GB)
  Receive Date: 20230318
  Receipt Date: 20230318
  Transmission Date: 20230417
  Serious: Yes (Other)
  Sender: FDA-Public Use
  Company Number: None

PATIENT
  Age: 72 Year
  Sex: Female
  Weight: 103.87 kg

DRUGS (4)
  1. NAPROXEN [Suspect]
     Active Substance: NAPROXEN
     Indication: Greater trochanteric pain syndrome
     Dosage: 2 DOSAGE FORMS DAILY;
     Route: 065
     Dates: start: 20230214, end: 20230307
  2. DOXYCYCLINE [Concomitant]
     Active Substance: DOXYCYCLINE
     Indication: Rash
     Dosage: TWO TO BE TAKEN ON THE FIRST DAY THEN ONE TO BE TAKEN EACH DAY,
     Dates: start: 20230109, end: 20230221
  3. MUPIROCIN [Concomitant]
     Active Substance: MUPIROCIN
     Indication: Rash
     Dosage: 9 GRAM DAILY; TO BE USED THREE TIMES A DAY,
     Route: 045
     Dates: start: 20230109, end: 20230221
  4. NAPROXEN [Concomitant]
     Active Substance: NAPROXEN
     Indication: Greater trochanteric pain syndrome
     Dosage: 2 DOSAGE FORMS DAILY;
     Dates: start: 20230214, end: 20230307

REACTIONS (6)
  - Hallucination [Recovered/Resolved]
  - Mouth ulceration [Not Recovered/Not Resolved]
  - Tinnitus [Recovering/Resolving]
  - Dizziness [Recovered/Resolved]
  - Hyperhidrosis [Recovered/Resolved]
  - Nausea [Recovered/Resolved]
